FAERS Safety Report 25279945 (Version 2)
Quarter: 2025Q4

REPORT INFORMATION
  Report Type: Spontaneous
  Country: EU (occurrence: EU)
  Receive Date: 20250507
  Receipt Date: 20251205
  Transmission Date: 20260117
  Serious: No
  Sender: BRISTOL-MYERS SQUIBB COMPANY
  Company Number: EU-TEVA-VS-3322472

PATIENT
  Age: 62 Year
  Sex: Female

DRUGS (3)
  1. PACLITAXEL [Suspect]
     Active Substance: PACLITAXEL
     Indication: Breast cancer
     Dosage: FOR 8 MONTHS
  2. CARBOPLATIN [Suspect]
     Active Substance: CARBOPLATIN
     Indication: Breast cancer
     Dosage: AUC 1.5, 12 CYCLES, WITHOUT DOSE REDUCTION, RECEIVED AS A PRIMARY TREATMENT INCLUDED NEOADJUVANT CHEMOTHERAPY
  3. CARBOPLATIN [Suspect]
     Active Substance: CARBOPLATIN
     Dosage: FOR 8 MONTHS

REACTIONS (1)
  - No adverse event [Unknown]
